FAERS Safety Report 6088174-0 (Version None)
Quarter: 2009Q1

REPORT INFORMATION
  Report Type: 
  Country: None (occurrence: None)
  Receive Date: 20090219
  Receipt Date: 20090126
  Transmission Date: 20090719
  Serious: Yes (Life-Threatening, Hospitalization)
  Sender: FDA-Public Use
  Company Number: 2009S1001427

PATIENT
  Age: 16 Year
  Sex: Female

DRUGS (5)
  1. HYDROXYCHLOROQUINE SULFATE [Suspect]
     Dosage: 20 GM
  2. METHOTREXATE [Suspect]
     Dosage: 470 MG
  3. PREDNISOLONE [Suspect]
     Dosage: 30 MG
  4. FOLIC ACID [Suspect]
     Dosage: 500 MG
  5. ALCOHOL [Concomitant]

REACTIONS (12)
  - ALCOHOL USE [None]
  - BLOOD BICARBONATE DECREASED [None]
  - BLOOD LACTIC ACID DECREASED [None]
  - BLOOD POTASSIUM DECREASED [None]
  - CYANOSIS [None]
  - DEPRESSED LEVEL OF CONSCIOUSNESS [None]
  - ELECTROCARDIOGRAM QRS COMPLEX PROLONGED [None]
  - ELECTROCARDIOGRAM QT PROLONGED [None]
  - GLASGOW COMA SCALE ABNORMAL [None]
  - HYPOTENSION [None]
  - PO2 INCREASED [None]
  - VENTRICULAR TACHYCARDIA [None]
